FAERS Safety Report 5572598-1 (Version None)
Quarter: 2007Q4

REPORT INFORMATION
  Report Type: 
  Country: None (occurrence: None)
  Receive Date: 20071130
  Receipt Date: 20070503
  Transmission Date: 20080405
  Serious: Yes (Other)
  Sender: FDA-Public Use
  Company Number: WAES 0705USA00815

PATIENT
  Age: 68 Year
  Sex: Female

DRUGS (15)
  1. FOSAMAX [Suspect]
     Indication: OSTEOPENIA
     Dosage: 40 MG WKY PO, 70 MG
     Route: 048
     Dates: start: 20031027, end: 20070312
  2. FOSAMAX [Suspect]
     Indication: OSTEOPOROSIS
     Dosage: 40 MG WKY PO, 70 MG
     Route: 048
     Dates: start: 20031027, end: 20070312
  3. FOSAMAX [Suspect]
     Indication: OSTEOPENIA
     Dosage: 40 MG WKY PO, 70 MG
     Route: 048
     Dates: start: 20000821
  4. FOSAMAX [Suspect]
     Indication: OSTEOPOROSIS
     Dosage: 40 MG WKY PO, 70 MG
     Route: 048
     Dates: start: 20000821
  5. FOSAMAX PLUS D [Suspect]
     Indication: OSTEOPENIA
     Dosage: 70 MG/2800 IU WKY PO
     Route: 048
     Dates: start: 20070312
  6. FOSAMAX PLUS D [Suspect]
     Indication: OSTEOPOROSIS
     Dosage: 70 MG/2800 IU WKY PO
     Route: 048
     Dates: start: 20070312
  7. CENTRUM SILVER [Concomitant]
  8. EVISTA [Concomitant]
  9. KLONOPIN [Concomitant]
  10. POSTURE D [Concomitant]
  11. ZANTAC [Concomitant]
  12. ZOCOR [Concomitant]
  13. BISACODYL [Concomitant]
  14. GASTROINTESTINAL PREPARATIONS [Concomitant]
  15. TRIAMCINOLONE ACETONIDE [Concomitant]

REACTIONS (1)
  - OSTEONECROSIS [None]
